FAERS Safety Report 5080110-9 (Version None)
Quarter: 2006Q3

REPORT INFORMATION
  Report Type: 
  Country: None (occurrence: None)
  Receive Date: 20060815
  Receipt Date: 20060804
  Transmission Date: 20061208
  Serious: Yes (Congenital Anomaly)
  Sender: FDA-Public Use
  Company Number: CA-SOLVAY-00306002625

PATIENT
  Weight: 3.09 kg

DRUGS (3)
  1. MENOTROPINS [Concomitant]
     Indication: DRUG EXPOSURE DURING PREGNANCY
     Dosage: DAILY DOSE:  UNKNOWN
     Route: 064
  2. PROGESTERONE [Suspect]
     Indication: DRUG EXPOSURE DURING PREGNANCY
     Dosage: DAILY DOSE:  UNKNOWN
     Route: 064
  3. CLOMIPHENE CITRATE [Suspect]
     Indication: DRUG EXPOSURE DURING PREGNANCY
     Dosage: DAILY DOSE:  UNKNOWN
     Route: 064

REACTIONS (1)
  - SPINAL MUSCULAR ATROPHY [None]
